FAERS Safety Report 7460516-0 (Version None)
Quarter: 2011Q2

REPORT INFORMATION
  Report Type: 
  Country: None (occurrence: None)
  Receive Date: 20110505
  Receipt Date: 20110404
  Transmission Date: 20111010
  Serious: Yes (Disabling)
  Sender: FDA-Public Use
  Company Number: US-SHIRE-ALL1-2011-00668

PATIENT
  Sex: Male
  Weight: 24.036 kg

DRUGS (1)
  1. MAS (MIXED AMPHETAMINE SALTS) [Suspect]
     Indication: ATTENTION DEFICIT/HYPERACTIVITY DISORDER
     Dosage: 20 MG, 1X/DAY:QD
     Route: 048
     Dates: start: 20090101, end: 20110101

REACTIONS (6)
  - ANGER [None]
  - CONDITION AGGRAVATED [None]
  - AGGRESSION [None]
  - ATTENTION DEFICIT/HYPERACTIVITY DISORDER [None]
  - IRRITABILITY [None]
  - MOOD ALTERED [None]
